FAERS Safety Report 14019829 (Version 1)
Quarter: 2017Q3

REPORT INFORMATION
  Report Type: Report from Study
  Country: US (occurrence: US)
  Receive Date: 20170928
  Receipt Date: 20170928
  Transmission Date: 20171128
  Serious: Yes (Hospitalization)
  Sender: FDA-Public Use
  Company Number: US-ACADIA PHARMACEUTICALS INC.-ACA-2017-005561

PATIENT
  Age: 80 Year
  Sex: Male
  Weight: 72.56 kg

DRUGS (3)
  1. NUPLAZID [Suspect]
     Active Substance: PIMAVANSERIN TARTRATE
     Indication: HALLUCINATION
     Dosage: 34 MG, QD
     Route: 048
     Dates: start: 20170809
  2. NUPLAZID [Suspect]
     Active Substance: PIMAVANSERIN TARTRATE
     Indication: PARKINSON^S DISEASE PSYCHOSIS
  3. NUPLAZID [Suspect]
     Active Substance: PIMAVANSERIN TARTRATE
     Indication: DELUSION

REACTIONS (8)
  - Weight decreased [Unknown]
  - Dehydration [Unknown]
  - General physical health deterioration [Unknown]
  - Disease progression [Unknown]
  - Blood pressure decreased [Unknown]
  - Dysphagia [Unknown]
  - Condition aggravated [Unknown]
  - Chromaturia [Unknown]

NARRATIVE: CASE EVENT DATE: 20170911
